FAERS Safety Report 6325059-6 (Version None)
Quarter: 2009Q3

REPORT INFORMATION
  Report Type: 
  Country: None (occurrence: None)
  Receive Date: 20090824
  Receipt Date: 20090709
  Transmission Date: 20100115
  Serious: No
  Sender: FDA-Public Use
  Company Number: US-ABBOTT-09P-163-0584960-00

PATIENT
  Sex: Male
  Weight: 90.8 kg

DRUGS (24)
  1. NIASPAN [Suspect]
     Indication: DRUG USE FOR UNKNOWN INDICATION
     Dates: start: 20090618
  2. IMDUR [Concomitant]
     Indication: DRUG USE FOR UNKNOWN INDICATION
  3. JANUVIA [Concomitant]
     Indication: DRUG USE FOR UNKNOWN INDICATION
  4. PROGRAF [Concomitant]
     Indication: DRUG USE FOR UNKNOWN INDICATION
  5. TEMAZEPAM [Concomitant]
     Indication: DRUG USE FOR UNKNOWN INDICATION
  6. COREG [Concomitant]
     Indication: DRUG USE FOR UNKNOWN INDICATION
  7. CELLCEPT [Concomitant]
     Indication: DRUG USE FOR UNKNOWN INDICATION
  8. ZANTAC [Concomitant]
     Indication: DRUG USE FOR UNKNOWN INDICATION
  9. PLAVIX [Concomitant]
     Indication: DRUG USE FOR UNKNOWN INDICATION
  10. PREDNISONE TAB [Concomitant]
     Indication: DRUG USE FOR UNKNOWN INDICATION
  11. PRAVACHOL [Concomitant]
     Indication: DRUG USE FOR UNKNOWN INDICATION
  12. AMARYL [Concomitant]
     Indication: DRUG USE FOR UNKNOWN INDICATION
  13. MAGNESIUM OXIDE [Concomitant]
     Indication: DRUG USE FOR UNKNOWN INDICATION
  14. COLESTID [Concomitant]
     Indication: DRUG USE FOR UNKNOWN INDICATION
  15. PERCOCET [Concomitant]
     Indication: DRUG USE FOR UNKNOWN INDICATION
  16. CO Q10 [Concomitant]
     Indication: DRUG USE FOR UNKNOWN INDICATION
  17. MICARDIS [Concomitant]
     Indication: DRUG USE FOR UNKNOWN INDICATION
  18. DITROPAN [Concomitant]
     Indication: DRUG USE FOR UNKNOWN INDICATION
  19. LASIX [Concomitant]
     Indication: DRUG USE FOR UNKNOWN INDICATION
  20. MULTIPLE VITAMINS [Concomitant]
     Indication: DRUG USE FOR UNKNOWN INDICATION
  21. POTASSIUM CHLORIDE [Concomitant]
     Indication: DRUG USE FOR UNKNOWN INDICATION
  22. FIBERCON [Concomitant]
     Indication: DRUG USE FOR UNKNOWN INDICATION
  23. SELENIUM [Concomitant]
     Indication: DRUG USE FOR UNKNOWN INDICATION
  24. ASPIRIN [Concomitant]
     Indication: DRUG USE FOR UNKNOWN INDICATION

REACTIONS (1)
  - BLOOD GLUCOSE INCREASED [None]
